FAERS Safety Report 9336008 (Version 3)
Quarter: 2013Q4

REPORT INFORMATION
  Report Type: Report from Study
  Country: DE (occurrence: DE)
  Receive Date: 20130607
  Receipt Date: 20131226
  Transmission Date: 20140711
  Serious: Yes (Hospitalization)
  Sender: FDA-Public Use
  Company Number: DE-AMGEN-DEUCT2013039980

PATIENT
  Age: 63 Year
  Sex: Male

DRUGS (9)
  1. ETANERCEPT [Suspect]
     Indication: PRODUCT USED FOR UNKNOWN INDICATION
     Dosage: 50 MG, WEEKLY (EVERY 7 DAYS)
     Route: 065
  2. PREDNISOLON                        /00016201/ [Concomitant]
     Dosage: UNK
  3. ASS [Concomitant]
     Dosage: UNK
  4. VIGANTOLETTEN [Concomitant]
     Dosage: UNK
  5. ENAHEXAL                           /00574902/ [Concomitant]
     Dosage: UNK
  6. METOPROLOL [Concomitant]
     Dosage: UNK
  7. OMEPRAZOL                          /00661201/ [Concomitant]
     Dosage: UNK
  8. TOREM                              /01036501/ [Concomitant]
     Dosage: UNK
  9. TRAMADOL HYDROCHLORIDE [Concomitant]
     Dosage: UNK

REACTIONS (1)
  - Upper respiratory tract infection [Recovered/Resolved]
